FAERS Safety Report 8598877-1 (Version None)
Quarter: 2012Q3

REPORT INFORMATION
  Report Type: 
  Country: None (occurrence: None)
  Receive Date: 20120816
  Receipt Date: 20120810
  Transmission Date: 20120928
  Serious: Yes (Hospitalization)
  Sender: FDA-Public Use
  Company Number: CH-PFIZER INC-2012195387

PATIENT
  Age: 40 Year
  Sex: Female

DRUGS (9)
  1. CALCIMAGON-D3 [Concomitant]
     Dosage: 2 DF, 1X/DAY
     Dates: start: 20020611
  2. LEVOTHYROXINE [Concomitant]
     Dosage: 75 UG, 1X/DAY
     Dates: start: 20010613
  3. CYCLACUR [Concomitant]
     Dosage: 1 UNIT, 1X/DAY
     Dates: start: 19991014
  4. PARACETAMOL [Concomitant]
     Dosage: 500 MG, MONTHLY
     Dates: start: 19990215
  5. MIDAZOLAM [Concomitant]
     Dosage: 7.5 MG, 1X/DAY
     Dates: start: 19981215
  6. HYDROCORTISONE [Concomitant]
     Dosage: 20 MG, 1X/DAY
     Dates: start: 20090623
  7. NORPROLAC ^NOVARTIS^ [Concomitant]
     Dosage: 75 UG, 1X/DAY
     Dates: start: 20080729
  8. GENOTROPIN [Suspect]
     Dosage: 1 MG, 1X/DAY
  9. GENOTROPIN [Suspect]
     Dosage: 0.5 MG, 1X/DAY
     Dates: start: 19980623, end: 19980623

REACTIONS (1)
  - ARTHROPATHY [None]
